FAERS Safety Report 9677157 (Version 2)
Quarter: 2013Q4

REPORT INFORMATION
  Report Type: Spontaneous
  Country: DE (occurrence: DE)
  Receive Date: 20131108
  Receipt Date: 20131108
  Transmission Date: 20140711
  Serious: Yes (Other)
  Sender: FDA-Public Use
  Company Number: DE-BRISTOL-MYERS SQUIBB COMPANY-19425768

PATIENT
  Age: 78 Year
  Sex: Male
  Weight: 107 kg

DRUGS (1)
  1. ELIQUIS [Suspect]
     Indication: ATRIAL FIBRILLATION
     Route: 048
     Dates: start: 20130808

REACTIONS (4)
  - Hyperhidrosis [Recovered/Resolved]
  - Tachycardia [Recovered/Resolved]
  - Tonsillar hypertrophy [Recovered/Resolved]
  - Sleep disorder [Recovered/Resolved]
